FAERS Safety Report 12535029 (Version 1)
Quarter: 2016Q3

REPORT INFORMATION
  Report Type: Spontaneous
  Country: US (occurrence: US)
  Receive Date: 20160707
  Receipt Date: 20160707
  Transmission Date: 20161109
  Serious: No
  Sender: FDA-Public Use
  Company Number: PHEH2016US016731

PATIENT
  Sex: Female

DRUGS (1)
  1. HYCAMTIN [Suspect]
     Active Substance: TOPOTECAN HYDROCHLORIDE
     Indication: LUNG NEOPLASM
     Dosage: 3 DF,Q DAY, FOR 5 DAYS-Q 21 DAYS CYCLE
     Route: 065
     Dates: start: 20160604, end: 20160701

REACTIONS (1)
  - Therapy non-responder [Unknown]
